FAERS Safety Report 14652393 (Version 1)
Quarter: 2018Q1

REPORT INFORMATION
  Report Type: Spontaneous
  Country: US (occurrence: US)
  Receive Date: 20180318
  Receipt Date: 20180318
  Transmission Date: 20180509
  Serious: No
  Sender: FDA-Public Use
  Company Number: US-BAUSCH-BL-2017-020384

PATIENT
  Age: 46 Year
  Sex: Male

DRUGS (2)
  1. DESMOPRESSIN ACETATE NASAL SOLUTION 0.01% [Suspect]
     Active Substance: DESMOPRESSIN ACETATE
     Dosage: USED FOR 3 DAYS
     Dates: start: 20170612, end: 20170626
  2. DESMOPRESSIN ACETATE NASAL SOLUTION 0.01% [Suspect]
     Active Substance: DESMOPRESSIN ACETATE
     Indication: PRODUCT USED FOR UNKNOWN INDICATION
     Dosage: STARTED APPROXIMATELY 17 YEARS PRIOR

REACTIONS (1)
  - Drug ineffective [Recovered/Resolved]

NARRATIVE: CASE EVENT DATE: 201706
